FAERS Safety Report 6596621-0 (Version None)
Quarter: 2010Q1

REPORT INFORMATION
  Report Type: 
  Country: None (occurrence: None)
  Receive Date: 20100223
  Receipt Date: 20100215
  Transmission Date: 20100710
  Serious: Yes (Other)
  Sender: FDA-Public Use
  Company Number: US-PFIZER INC-2010004352

PATIENT
  Sex: Male
  Weight: 104 kg

DRUGS (5)
  1. CHANTIX [Suspect]
     Indication: SMOKING CESSATION THERAPY
     Dosage: 1 MG, 2X/DAY
     Dates: start: 20090701, end: 20091201
  2. PERCOCET [Concomitant]
     Indication: PAIN
  3. OXYMORPHONE [Concomitant]
  4. ZANAFLEX [Concomitant]
  5. ELAVIL [Concomitant]

REACTIONS (3)
  - ABNORMAL DREAMS [None]
  - RASH [None]
  - SPINAL FUSION SURGERY [None]
